FAERS Safety Report 14627393 (Version 1)
Quarter: 2018Q1

REPORT INFORMATION
  Report Type: Spontaneous
  Country: US (occurrence: US)
  Receive Date: 20180312
  Receipt Date: 20180312
  Transmission Date: 20180509
  Serious: Yes (Other)
  Sender: FDA-Public Use
  Company Number: US-BAYER-2018-039675

PATIENT
  Age: 76 Year
  Sex: Female

DRUGS (1)
  1. ALIQOPA [Suspect]
     Active Substance: COPANLISIB
     Indication: B-CELL LYMPHOMA
     Dosage: 60 MG ON DAY 1
     Route: 042
     Dates: start: 20180213

REACTIONS (1)
  - Neutropenia [None]

NARRATIVE: CASE EVENT DATE: 20180221
